FAERS Safety Report 6619728-8 (Version None)
Quarter: 2010Q1

REPORT INFORMATION
  Report Type: 
  Country: None (occurrence: None)
  Receive Date: 20100309
  Receipt Date: 20100224
  Transmission Date: 20100710
  Serious: Yes (Hospitalization, Other)
  Sender: FDA-Public Use
  Company Number: PHHY2010IR11861

PATIENT

DRUGS (12)
  1. NEORAL [Suspect]
     Indication: LUNG TRANSPLANT
     Dosage: 25 MG, BID
     Route: 048
  2. NEORAL [Suspect]
     Dosage: 15 ML, UNK
     Route: 048
  3. MYCOPHENOLATE MOFETIL [Concomitant]
     Indication: LUNG TRANSPLANT
     Dosage: 1000 MG, BID
     Route: 048
  4. PREDNISOLONE [Concomitant]
     Indication: LUNG TRANSPLANT
     Dosage: 25 MG, DAILY
     Route: 048
  5. METOPROLOL TARTRATE [Concomitant]
     Dosage: 25 MG, DAILY
     Route: 048
  6. SPIRONOLACTONE [Concomitant]
     Dosage: 25 MG, BID
     Route: 048
  7. DILTIAZEM HCL [Concomitant]
     Dosage: 30 MG, TDS
     Route: 048
  8. OMEPRAZOLE [Concomitant]
     Dosage: 20 MG, DAILY
     Route: 048
  9. GANCICLOVIR [Concomitant]
     Dosage: 150 MG DAILY
     Route: 042
  10. ENOXAPARIN SODIUM [Concomitant]
     Dosage: 80 MG, BID
     Route: 058
  11. WARFARIN SODIUM [Concomitant]
     Dosage: 2.5 MG, UNK
     Route: 048
  12. FUROSEMIDE [Concomitant]
     Dosage: 20 MG, BID
     Route: 042

REACTIONS (12)
  - ABDOMINAL PAIN [None]
  - ACCIDENTAL OVERDOSE [None]
  - ANURIA [None]
  - ASTHENIA [None]
  - DEEP VEIN THROMBOSIS [None]
  - DRUG DISPENSING ERROR [None]
  - GASTROINTESTINAL TOXICITY [None]
  - HYPERTENSION [None]
  - NAUSEA [None]
  - RENAL IMPAIRMENT [None]
  - TREMOR [None]
  - VOMITING [None]
